FAERS Safety Report 18508483 (Version 1)
Quarter: 2020Q4

REPORT INFORMATION
  Report Type: Report from Study
  Country: None (occurrence: NL)
  Receive Date: 20201116
  Receipt Date: 20201116
  Transmission Date: 20210114
  Serious: Yes (Other)
  Sender: FDA-Public Use
  Company Number: NL-ABBVIE-20K-114-3651172-00

PATIENT
  Sex: Male

DRUGS (2)
  1. SYNAGIS [Suspect]
     Active Substance: PALIVIZUMAB
     Route: 030
     Dates: start: 20201111, end: 20201111
  2. SYNAGIS [Suspect]
     Active Substance: PALIVIZUMAB
     Indication: HEART DISEASE CONGENITAL
     Route: 030
     Dates: start: 20201014, end: 20201014

REACTIONS (3)
  - Fluid intake reduced [Not Recovered/Not Resolved]
  - Gastrointestinal tube insertion [Unknown]
  - Nasopharyngitis [Not Recovered/Not Resolved]

NARRATIVE: CASE EVENT DATE: 2020
